FAERS Safety Report 10444740 (Version 2)
Quarter: 2014Q4

REPORT INFORMATION
  Report Type: Spontaneous
  Country: US (occurrence: US)
  Receive Date: 20140910
  Receipt Date: 20141031
  Transmission Date: 20150528
  Serious: Yes (Other)
  Sender: FDA-Public Use
  Company Number: US-BAYER-2014-131281

PATIENT
  Age: 27 Year
  Sex: Female
  Weight: 84 kg

DRUGS (1)
  1. MIRENA [Suspect]
     Active Substance: LEVONORGESTREL
     Indication: CONTRACEPTION
     Dosage: 20 MCG/24HR, CONT
     Route: 015
     Dates: start: 20090827, end: 20110624

REACTIONS (8)
  - Emotional distress [None]
  - Internal injury [None]
  - Injury [None]
  - Hypoaesthesia [None]
  - Dyspareunia [Not Recovered/Not Resolved]
  - Device issue [None]
  - Embedded device [None]
  - Abdominal pain [None]

NARRATIVE: CASE EVENT DATE: 2009
